FAERS Safety Report 6661214-3 (Version None)
Quarter: 2010Q1

REPORT INFORMATION
  Report Type: 
  Country: None (occurrence: None)
  Receive Date: 20100326
  Receipt Date: 20100308
  Transmission Date: 20100710
  Serious: Yes (Death, Hospitalization)
  Sender: FDA-Public Use
  Company Number: IMP_04924_2010

PATIENT
  Age: 87 Year
  Sex: Male
  Weight: 39 kg

DRUGS (3)
  1. DIGOXIN [Suspect]
     Indication: CARDIAC FAILURE CONGESTIVE
     Dosage: DF
  2. DIGOXIN [Suspect]
     Indication: CORONARY ARTERY DISEASE
     Dosage: DF
  3. FUROSEMIDE [Concomitant]

REACTIONS (21)
  - ALTERED STATE OF CONSCIOUSNESS [None]
  - APOPTOSIS [None]
  - ARTERIOSCLEROSIS CORONARY ARTERY [None]
  - BLOOD POTASSIUM DECREASED [None]
  - BRADYCARDIA [None]
  - C-REACTIVE PROTEIN INCREASED [None]
  - CEREBRAL ATROPHY [None]
  - CONVULSION [None]
  - CORONARY ARTERY STENOSIS [None]
  - ECCHYMOSIS [None]
  - GLOMERULOSCLEROSIS [None]
  - HYPERNATRAEMIA [None]
  - HYPOPROTEINAEMIA [None]
  - HYPOTENSION [None]
  - MALNUTRITION [None]
  - NEPHROSCLEROSIS [None]
  - OSMOTIC DEMYELINATION SYNDROME [None]
  - PRODUCTIVE COUGH [None]
  - RENAL FAILURE [None]
  - THERAPEUTIC AGENT TOXICITY [None]
  - UPPER RESPIRATORY TRACT INFECTION [None]
